FAERS Safety Report 19435689 (Version 2)
Quarter: 2021Q3

REPORT INFORMATION
  Report Type: Spontaneous
  Country: IT (occurrence: IT)
  Receive Date: 20210618
  Receipt Date: 20210703
  Transmission Date: 20211014
  Serious: Yes (Death)
  Sender: FDA-Public Use
  Company Number: IT-TEVA-2021-IT-1922790

PATIENT
  Age: 67 Year
  Sex: Male
  Weight: 68 kg

DRUGS (3)
  1. TICLOPIDINE [Suspect]
     Active Substance: TICLOPIDINE
     Indication: ANTIPLATELET THERAPY
     Route: 048
     Dates: end: 20210529
  2. METFORMIN [Concomitant]
     Active Substance: METFORMIN HYDROCHLORIDE
     Indication: TYPE 2 DIABETES MELLITUS
     Route: 048
  3. JANSSEN COVID?19 VACCINE [Suspect]
     Active Substance: AD26.COV2.S
     Indication: COVID-19 IMMUNISATION
     Dosage: 1DOSAGEFORM
     Route: 030
     Dates: start: 20210524, end: 20210524

REACTIONS (6)
  - Loss of consciousness [Fatal]
  - Shift to the left [Fatal]
  - Cerebral haemorrhage [Fatal]
  - Eye movement disorder [Fatal]
  - Incontinence [Fatal]
  - Asthenia [Fatal]

NARRATIVE: CASE EVENT DATE: 20210529
